FAERS Safety Report 5147948-0 (Version None)
Quarter: 2006Q4

REPORT INFORMATION
  Report Type: 
  Country: None (occurrence: None)
  Receive Date: 20061106
  Receipt Date: 20061019
  Transmission Date: 20070319
  Serious: Yes (Hospitalization)
  Sender: FDA-Public Use
  Company Number: 2005063918

PATIENT
  Age: 31 Year
  Sex: Female
  Weight: 93.441 kg

DRUGS (3)
  1. SUTENT [Suspect]
     Dosage: SEE IMAGE, ORAL
     Route: 048
     Dates: start: 20031202, end: 20040727
  2. SUTENT [Suspect]
     Dosage: SEE IMAGE, ORAL
     Route: 048
     Dates: end: 20050328
  3. SUTENT [Suspect]
     Dosage: SEE IMAGE, ORAL
     Route: 048
     Dates: start: 20050427

REACTIONS (3)
  - ANGIONEUROTIC OEDEMA [None]
  - HYPERSENSITIVITY [None]
  - HYPERTENSIVE CRISIS [None]
